FAERS Safety Report 7897983-4 (Version None)
Quarter: 2011Q4

REPORT INFORMATION
  Report Type: 
  Country: None (occurrence: None)
  Receive Date: 20111107
  Receipt Date: 20111107
  Transmission Date: 20120403
  Serious: Yes (Life-Threatening)
  Sender: FDA-Public Use
  Company Number: None

PATIENT
  Age: 66 Year
  Sex: Male
  Weight: 83 kg

DRUGS (1)
  1. BENDAMUSTINE [Suspect]
     Indication: NON-SMALL CELL LUNG CANCER
     Dosage: 232MG
     Route: 042
     Dates: start: 20110707, end: 20110708

REACTIONS (2)
  - PERICARDIAL EFFUSION MALIGNANT [None]
  - FALL [None]
